FAERS Safety Report 10179191 (Version 1)
Quarter: 2014Q2

REPORT INFORMATION
  Report Type: Spontaneous
  Country: US (occurrence: US)
  Receive Date: 20140519
  Receipt Date: 20140519
  Transmission Date: 20141212
  Serious: No
  Sender: FDA-Public Use
  Company Number: US-PFIZER INC-2014136023

PATIENT
  Age: 37 Year
  Sex: Female
  Weight: 104 kg

DRUGS (2)
  1. ZOLOFT [Suspect]
     Indication: DEPRESSION
     Dosage: UNK, DAILY
     Dates: start: 1999, end: 1999
  2. ZOLOFT [Suspect]
     Dosage: UNK, EVERY ALTERNATE DAY
     Dates: start: 1999, end: 1999

REACTIONS (1)
  - Crying [Unknown]
